FAERS Safety Report 4325161-4 (Version None)
Quarter: 2004Q1

REPORT INFORMATION
  Report Type: 
  Country: None (occurrence: None)
  Receive Date: 20040326
  Receipt Date: 20040316
  Transmission Date: 20041129
  Serious: Yes (Other)
  Sender: FDA-Public Use
  Company Number: US-MERCK-0403USA01478

PATIENT

DRUGS (2)
  1. CORTICOSTEROIDS (UNSPECIFIED) [Concomitant]
  2. SINGULAIR [Suspect]
     Route: 048

REACTIONS (1)
  - ALLERGIC GRANULOMATOUS ANGIITIS [None]
